FAERS Safety Report 11051155 (Version 1)
Quarter: 2015Q2

REPORT INFORMATION
  Report Type: Spontaneous
  Country: BR (occurrence: BR)
  Receive Date: 20150421
  Receipt Date: 20150421
  Transmission Date: 20150821
  Serious: Yes (Other)
  Sender: FDA-Public Use
  Company Number: BR-PFIZER INC-2015128809

PATIENT
  Age: 71 Year
  Sex: Female
  Weight: 79 kg

DRUGS (8)
  1. SOMALGIN [Concomitant]
     Active Substance: ASPIRIN\DIHYDROXYALUMINUM AMINOACETATE ANHYDROUS\MAGNESIUM CARBONATE
     Indication: COAGULOPATHY
     Dosage: UNK
     Dates: start: 1987
  2. XALATAN [Suspect]
     Active Substance: LATANOPROST
     Indication: GLAUCOMA
     Dosage: 1 DROP IN EACH EYE, UNSPECIFIED FREQUENCY
     Route: 047
     Dates: start: 2008
  3. ATENOLOL. [Concomitant]
     Active Substance: ATENOLOL
     Indication: HYPERTENSION
     Dosage: 1 UNSPECIFIED IF CAPSULE OR TABLET STRENGTH 25 MG, EVERY 12 HOURS
  4. XALATAN [Suspect]
     Active Substance: LATANOPROST
     Indication: CATARACT
  5. FRESH TEARS /00007002/ [Concomitant]
     Indication: DRY EYE
     Dosage: UNSPECIFIED DOSE, 3X/DAY
  6. CLORANA [Concomitant]
     Active Substance: HYDROCHLOROTHIAZIDE
     Indication: HYPERTENSION
     Dosage: 1 UNSPECIFIED IF CAPSULE OR TABLET, EVERY 12 HOURS
  7. LOSARTAN [Concomitant]
     Active Substance: LOSARTAN
     Indication: HYPERTENSION
     Dosage: 1 UNSPECIFIED IF CAPSULE OR TABLET OF STRENGTH 50 MG, EVERY 12 HOURS
  8. TIMOLOL MALEATE. [Concomitant]
     Active Substance: TIMOLOL MALEATE
     Indication: GLAUCOMA
     Dosage: UNSPECIFIED DOSE, 2X/DAY

REACTIONS (6)
  - Spinal disorder [Unknown]
  - Joint injury [Unknown]
  - Condition aggravated [Unknown]
  - Fall [Unknown]
  - Eye infection [Unknown]
  - Vision blurred [Unknown]

NARRATIVE: CASE EVENT DATE: 201412
